FAERS Safety Report 9224806 (Version 2)
Quarter: 2013Q2

REPORT INFORMATION
  Report Type: Report from Study
  Country: FR (occurrence: FR)
  Receive Date: 20130411
  Receipt Date: 20130424
  Transmission Date: 20140414
  Serious: Yes (Hospitalization, Other)
  Sender: FDA-Public Use
  Company Number: FR-ASTELLAS-2013EU003199

PATIENT
  Age: 55 Year
  Sex: Male
  Weight: 83 kg

DRUGS (8)
  1. TACROLIMUS MR4 CAPSULES [Suspect]
     Indication: RENAL TRANSPLANT
     Dosage: 15 MG, UID/QD
     Route: 048
     Dates: start: 20120714
  2. CELLCEPT /01275102/ [Suspect]
     Indication: RENAL TRANSPLANT
     Dosage: 500 MG, TID
     Route: 048
     Dates: start: 20120615
  3. AMLOR [Concomitant]
     Indication: HYPERTENSION
     Dosage: 10 MG, UID/QD
     Route: 048
     Dates: start: 20120620
  4. INEGY [Concomitant]
     Indication: DYSLIPIDAEMIA
     Dosage: UNK
     Route: 048
     Dates: start: 20120615
  5. ROVALCYTE [Concomitant]
     Indication: ANTIVIRAL PROPHYLAXIS
     Dosage: 450 DF, OTHER
     Route: 048
     Dates: start: 20120616, end: 20120915
  6. VIREAD [Concomitant]
     Indication: HEPATITIS B
     Dosage: 245 MG, 3XWEEKLY
     Route: 048
     Dates: start: 20120615
  7. INSULIN [Concomitant]
     Indication: DIABETES MELLITUS
     Dosage: UNK
     Route: 058
     Dates: start: 20120617
  8. KARDEGIC [Concomitant]
     Indication: THROMBOSIS PROPHYLAXIS
     Dosage: 160 MG, UID/QD
     Route: 048
     Dates: start: 20120615

REACTIONS (15)
  - Enterococcal infection [Recovered/Resolved]
  - Bacterial pyelonephritis [Recovered/Resolved]
  - Enterococcal infection [Recovered/Resolved]
  - Bacterial pyelonephritis [Recovered/Resolved]
  - Renal failure acute [Recovered/Resolved]
  - Thrombocytosis [Recovered/Resolved]
  - Histology abnormal [Recovered/Resolved]
  - Vitreous haemorrhage [Recovered/Resolved]
  - Oedema peripheral [Not Recovered/Not Resolved]
  - Lymphocele [Recovered/Resolved]
  - Cough [Recovering/Resolving]
  - Iron deficiency [Not Recovered/Not Resolved]
  - Insomnia [Not Recovered/Not Resolved]
  - Nausea [Recovered/Resolved]
  - Diarrhoea [Not Recovered/Not Resolved]
